FAERS Safety Report 5830661-1 (Version None)
Quarter: 2008Q3

REPORT INFORMATION
  Report Type: 
  Country: None (occurrence: None)
  Receive Date: 20080801
  Receipt Date: 20070920
  Transmission Date: 20090109
  Serious: No
  Sender: FDA-Public Use
  Company Number: US-BRISTOL-MYERS SQUIBB COMPANY-13914700

PATIENT
  Age: 22 Year
  Sex: Male
  Weight: 63 kg

DRUGS (1)
  1. COUMADIN [Suspect]
     Indication: THROMBOSIS
     Dosage: DOSE 1 TABLET 2NIGHTS/WEEK AND 1 1/2 TABLETS THE REMAINING NIGHTS.
     Dates: start: 20040101

REACTIONS (2)
  - DRY SKIN [None]
  - PSORIASIS [None]
